FAERS Safety Report 6984888-6 (Version None)
Quarter: 2010Q3

REPORT INFORMATION
  Report Type: 
  Country: None (occurrence: None)
  Receive Date: 20100915
  Receipt Date: 20100902
  Transmission Date: 20110219
  Serious: Yes (Life-Threatening, Other)
  Sender: FDA-Public Use
  Company Number: AU-ELI_LILLY_AND_COMPANY-AU201007005462

PATIENT
  Sex: Male
  Weight: 83 kg

DRUGS (1)
  1. STRATTERA [Suspect]
     Indication: ATTENTION DEFICIT/HYPERACTIVITY DISORDER
     Dosage: 100 MEQ, DAILY (1/D)
     Route: 065
     Dates: start: 20080830

REACTIONS (4)
  - AGITATION [None]
  - PARANOIA [None]
  - RESTLESSNESS [None]
  - SUICIDAL IDEATION [None]
